FAERS Safety Report 5020547-7 (Version None)
Quarter: 2006Q2

REPORT INFORMATION
  Report Type: 
  Country: None (occurrence: None)
  Receive Date: 20060606
  Receipt Date: 20060523
  Transmission Date: 20061013
  Serious: Yes (Hospitalization)
  Sender: FDA-Public Use
  Company Number: 2006S1004655

PATIENT
  Age: 44 Year
  Sex: Male

DRUGS (6)
  1. CLOZAPINE [Suspect]
     Indication: PSYCHOTIC DISORDER
     Dosage: 250 MG QD PO ; 400 MG QD PO ; 600 MG QD PO
     Route: 048
     Dates: end: 20060520
  2. CLOZAPINE [Suspect]
     Indication: PSYCHOTIC DISORDER
     Dosage: 250 MG QD PO ; 400 MG QD PO ; 600 MG QD PO
     Route: 048
     Dates: start: 20060521
  3. ARIPIPRAZOLE [Concomitant]
  4. ATORVASTATIN CALCIUM [Concomitant]
  5. OMEPRAZOLE [Concomitant]
  6. SERUM GONADOTROPHIN [Concomitant]

REACTIONS (3)
  - CONDITION AGGRAVATED [None]
  - GRANULOCYTOPENIA [None]
  - PSYCHOTIC DISORDER [None]
